FAERS Safety Report 22048917 (Version 1)
Quarter: 2023Q1

REPORT INFORMATION
  Report Type: Spontaneous
  Country: US (occurrence: US)
  Receive Date: 20230301
  Receipt Date: 20230301
  Transmission Date: 20230418
  Serious: Yes (Other)
  Sender: FDA-Public Use
  Company Number: US-BRISTOL-MYERS SQUIBB COMPANY-2023-026582

PATIENT
  Age: 51 Year
  Sex: Male
  Weight: 84 kg

DRUGS (1)
  1. NULOJIX [Suspect]
     Active Substance: BELATACEPT
     Indication: Renal transplant
     Dosage: FREQ : OVER 30 MINS EVERY 28 DAYS. 5MG/KG WITH 100ML? SALINE IV
     Route: 042
     Dates: end: 20210416

REACTIONS (2)
  - Post transplant lymphoproliferative disorder [Unknown]
  - Epstein-Barr virus infection [Unknown]
